FAERS Safety Report 24403866 (Version 1)
Quarter: 2024Q4

REPORT INFORMATION
  Report Type: Spontaneous
  Country: US (occurrence: US)
  Receive Date: 20241007
  Receipt Date: 20241007
  Transmission Date: 20250114
  Serious: No
  Sender: RANBAXY
  Company Number: US-SUN PHARMACEUTICAL INDUSTRIES LTD-2024R1-453045

PATIENT
  Age: 46 Year
  Sex: Female

DRUGS (1)
  1. CEQUA [Suspect]
     Active Substance: CYCLOSPORINE
     Indication: Product used for unknown indication
     Dosage: UNK (IN THE MORNING)
     Route: 047
     Dates: start: 202406

REACTIONS (6)
  - Eye pain [Unknown]
  - Eye irritation [Unknown]
  - Lacrimation increased [Unknown]
  - Eye movement disorder [Unknown]
  - Eye swelling [Unknown]
  - Suspected product contamination [Unknown]

NARRATIVE: CASE EVENT DATE: 20240601
